FAERS Safety Report 7781842-1 (Version None)
Quarter: 2011Q3

REPORT INFORMATION
  Report Type: 
  Country: None (occurrence: None)
  Receive Date: 20110927
  Receipt Date: 20110914
  Transmission Date: 20111222
  Serious: Yes (Other)
  Sender: FDA-Public Use
  Company Number: CA-BAYER-2011-084328

PATIENT
  Age: 33 Year
  Sex: Female

DRUGS (10)
  1. ACETYLSALICYLIC ACID SRT [Suspect]
     Indication: CORONARY ARTERY DISSECTION
  2. EPTIFIBATIDE [Concomitant]
     Indication: CORONARY ARTERY DISSECTION
  3. ATENOLOL [Concomitant]
     Indication: ACUTE MYOCARDIAL INFARCTION
  4. CLOPIDOGREL [Suspect]
     Indication: ACUTE MYOCARDIAL INFARCTION
  5. ACETYLSALICYLIC ACID SRT [Suspect]
     Indication: ACUTE MYOCARDIAL INFARCTION
  6. EPTIFIBATIDE [Concomitant]
     Indication: ACUTE MYOCARDIAL INFARCTION
  7. HEPARIN [Concomitant]
     Indication: ACUTE MYOCARDIAL INFARCTION
  8. CLOPIDOGREL [Suspect]
     Indication: CORONARY ARTERY DISSECTION
  9. ATENOLOL [Concomitant]
     Indication: CORONARY ARTERY DISSECTION
  10. HEPARIN [Concomitant]
     Indication: CORONARY ARTERY DISSECTION

REACTIONS (1)
  - INTRA-UTERINE DEATH [None]
